FAERS Safety Report 12601229 (Version 1)
Quarter: 2016Q3

REPORT INFORMATION
  Report Type: Spontaneous
  Country: US (occurrence: US)
  Receive Date: 20160728
  Receipt Date: 20160728
  Transmission Date: 20161109
  Serious: No
  Sender: FDA-Public Use
  Company Number: US-BIOGEN-2016BI00269703

PATIENT
  Age: 52 Year
  Sex: Male

DRUGS (3)
  1. TYSABRI [Suspect]
     Active Substance: NATALIZUMAB
     Route: 042
     Dates: start: 20160505
  2. TYSABRI [Suspect]
     Active Substance: NATALIZUMAB
     Indication: MULTIPLE SCLEROSIS
     Route: 042
     Dates: start: 20080613, end: 20141120
  3. TYSABRI [Suspect]
     Active Substance: NATALIZUMAB
     Route: 042
     Dates: start: 20150209, end: 20150817

REACTIONS (8)
  - Drug ineffective [Recovered/Resolved]
  - Gait disturbance [Recovered/Resolved]
  - Drug dose omission [Recovered/Resolved]
  - General symptom [Recovered/Resolved]
  - Fatigue [Recovered/Resolved]
  - Memory impairment [Recovered/Resolved]
  - Mental impairment [Recovered/Resolved]
  - Disturbance in attention [Recovered/Resolved]

NARRATIVE: CASE EVENT DATE: 20160630
